FAERS Safety Report 10747679 (Version 1)
Quarter: 2015Q1

REPORT INFORMATION
  Report Type: Spontaneous
  Country: US (occurrence: None)
  Receive Date: 20150128
  Receipt Date: 20150128
  Transmission Date: 20150721
  Serious: Yes (Death)
  Sender: FDA-Public Use
  Company Number: None

PATIENT
  Age: 45 Year
  Sex: Male

DRUGS (11)
  1. NEURONTIN [Concomitant]
     Active Substance: GABAPENTIN
  2. NORCO [Concomitant]
     Active Substance: ACETAMINOPHEN\HYDROCODONE BITARTRATE
  3. PREVACID [Concomitant]
     Active Substance: LANSOPRAZOLE
  4. CELEBREX [Concomitant]
     Active Substance: CELECOXIB
  5. ZOFRAN [Concomitant]
     Active Substance: ONDANSETRON HYDROCHLORIDE
  6. BARIUM [Concomitant]
     Active Substance: BARIUM
  7. OXYCODONE [Concomitant]
     Active Substance: OXYCODONE
  8. ENOXAPARIN [Concomitant]
     Active Substance: ENOXAPARIN
  9. CAPECITABINE. [Suspect]
     Active Substance: CAPECITABINE
     Indication: CHOLANGIOCARCINOMA
     Route: 048
     Dates: start: 20141219, end: 20150107
  10. MORPHINE [Concomitant]
     Active Substance: MORPHINE
  11. LOPERAMIDE [Concomitant]
     Active Substance: LOPERAMIDE

REACTIONS (1)
  - Death [None]

NARRATIVE: CASE EVENT DATE: 20150107
